FAERS Safety Report 6099360-8 (Version None)
Quarter: 2009Q1

REPORT INFORMATION
  Report Type: 
  Country: None (occurrence: None)
  Receive Date: 20090226
  Receipt Date: 20090212
  Transmission Date: 20090719
  Serious: Yes (Death, Hospitalization)
  Sender: FDA-Public Use
  Company Number: A-US2009-23873

PATIENT
  Age: 63 Year
  Sex: Female
  Weight: 63.5 kg

DRUGS (7)
  1. TRACLEER [Suspect]
     Indication: PULMONARY ARTERIAL HYPERTENSION
     Dosage: 125 MG, BID; 62.5 MG, BID, ORAL
     Route: 048
  2. TREPROSTINIL (TREPROSTINIL) [Concomitant]
  3. AMIODARONE (AMIODARONE) [Concomitant]
  4. FUROSEMIDE [Concomitant]
  5. SERTRALINE [Concomitant]
  6. SPIRONOLACTONE [Concomitant]
  7. COUMADIN [Concomitant]

REACTIONS (3)
  - CHOLECYSTITIS ACUTE [None]
  - HYPOXIA [None]
  - RIGHT VENTRICULAR FAILURE [None]
